FAERS Safety Report 22839615 (Version 2)
Quarter: 2023Q4

REPORT INFORMATION
  Report Type: Report from Study
  Country: GB (occurrence: GB)
  Receive Date: 20230818
  Receipt Date: 20231013
  Transmission Date: 20240109
  Serious: Yes (Life-Threatening, Other)
  Sender: FDA-Public Use
  Company Number: GB-002147023-NVSC2021GB078023

PATIENT
  Sex: Female

DRUGS (2)
  1. COSENTYX [Suspect]
     Active Substance: SECUKINUMAB
     Indication: Ankylosing spondylitis
     Dosage: 150 MG, QMO
     Route: 065
  2. COSENTYX [Suspect]
     Active Substance: SECUKINUMAB
     Dosage: 150 MG, QMO (E28D) (2 PRE-FILLED DISPOSABLE INJECTION)
     Route: 058
     Dates: start: 20201112

REACTIONS (11)
  - Suicide attempt [Unknown]
  - Pain [Unknown]
  - Crying [Unknown]
  - Depression [Unknown]
  - Stress [Unknown]
  - Feeling abnormal [Unknown]
  - Product dose omission issue [Unknown]
  - Product supply issue [Unknown]
  - Asthma [Unknown]
  - Insomnia [Unknown]
  - Wrist fracture [Unknown]
